FAERS Safety Report 7385869-3 (Version None)
Quarter: 2011Q1

REPORT INFORMATION
  Report Type: 
  Country: None (occurrence: None)
  Receive Date: 20110331
  Receipt Date: 20110328
  Transmission Date: 20110831
  Serious: Yes (Other)
  Sender: FDA-Public Use
  Company Number: US-PFIZER INC-2011069895

PATIENT
  Sex: Female
  Weight: 54.4 kg

DRUGS (3)
  1. SIMVASTATIN [Concomitant]
     Dosage: 20 MG, 1X/DAY
     Route: 048
  2. LYRICA [Suspect]
     Indication: PAIN IN EXTREMITY
     Dosage: 50 MG, 3X/DAY
     Route: 048
     Dates: start: 20110317, end: 20110317
  3. DILTIAZEM HYDROCHLORIDE [Concomitant]
     Dosage: 180 MG, 1X/DAY
     Route: 048

REACTIONS (3)
  - NERVOUSNESS [None]
  - FEELING ABNORMAL [None]
  - DIPLOPIA [None]
